FAERS Safety Report 13553646 (Version 1)
Quarter: 2017Q2

REPORT INFORMATION
  Report Type: Other
  Country: US (occurrence: US)
  Receive Date: 20170517
  Receipt Date: 20170517
  Transmission Date: 20170830
  Serious: Yes (Other)
  Sender: FDA-Public Use
  Company Number: US-NEXGEN PHARMA, INC.-2020849

PATIENT
  Age: 56 Year
  Sex: Female

DRUGS (1)
  1. POLYETHYLENE GLYCOL 3350 FOR ORAL SOLUTION [Suspect]
     Active Substance: POLYETHYLENE GLYCOL 3350
     Indication: LAXATIVE SUPPORTIVE CARE
     Route: 048

REACTIONS (1)
  - Anxiety [Not Recovered/Not Resolved]
